FAERS Safety Report 10419201 (Version 1)
Quarter: 2014Q3

REPORT INFORMATION
  Report Type: Spontaneous
  Country: US (occurrence: US)
  Receive Date: 20140829
  Receipt Date: 20140829
  Transmission Date: 20150326
  Serious: Yes (Other)
  Sender: FDA-Public Use
  Company Number: US-GLAXOSMITHKLINE-A1086116A

PATIENT
  Age: 71 Year
  Sex: Female

DRUGS (17)
  1. PROTONIX [Concomitant]
     Active Substance: PANTOPRAZOLE SODIUM
  2. AMLODIPINE [Concomitant]
     Active Substance: AMLODIPINE BESYLATE
  3. VITAMIN C [Concomitant]
     Active Substance: ASCORBIC ACID
  4. ICAPS [Concomitant]
     Active Substance: MINERALS\VITAMINS
  5. CITALOPRAM [Concomitant]
     Active Substance: CITALOPRAM HYDROBROMIDE
  6. TYLENOL [Concomitant]
     Active Substance: ACETAMINOPHEN
  7. LEVOTHYROXINE [Concomitant]
     Active Substance: LEVOTHYROXINE
  8. CELEBREX [Concomitant]
     Active Substance: CELECOXIB
  9. FUROSEMIDE. [Concomitant]
     Active Substance: FUROSEMIDE
  10. CALCIUM [Concomitant]
     Active Substance: CALCIUM
  11. FISH OIL [Concomitant]
     Active Substance: FISH OIL
  12. CLARITIN D 12 HOURS [Concomitant]
  13. MONTELUKAST SODIUM. [Concomitant]
     Active Substance: MONTELUKAST SODIUM
  14. KLOR-CON [Concomitant]
     Active Substance: POTASSIUM CHLORIDE
  15. PROBIOTIC [Concomitant]
     Active Substance: PROBIOTICS NOS
  16. ADVAIR HFA [Suspect]
     Active Substance: FLUTICASONE PROPIONATE\SALMETEROL XINAFOATE
     Indication: ASTHMA
     Dosage: 1PUFF TWICE PER DAY
     Route: 055
     Dates: start: 2001
  17. VITAMIN D3 [Concomitant]
     Active Substance: CHOLECALCIFEROL

REACTIONS (3)
  - Cough [Not Recovered/Not Resolved]
  - Dyspnoea [Unknown]
  - Choking [Unknown]

NARRATIVE: CASE EVENT DATE: 20140819
